FAERS Safety Report 24586477 (Version 2)
Quarter: 2025Q4

REPORT INFORMATION
  Report Type: Report from Study
  Country: US (occurrence: US)
  Receive Date: 20241106
  Receipt Date: 20251228
  Transmission Date: 20260118
  Serious: Yes (Other)
  Sender: ABBVIE
  Company Number: US-ABBVIE-5988854

PATIENT
  Age: 58 Year
  Sex: Male

DRUGS (2)
  1. SKYRIZI [Suspect]
     Active Substance: RISANKIZUMAB-RZAA
     Indication: Product used for unknown indication
     Route: 058
     Dates: start: 20240206, end: 202402
  2. SKYRIZI [Suspect]
     Active Substance: RISANKIZUMAB-RZAA
     Route: 058
     Dates: start: 20240225

REACTIONS (6)
  - Retinal tear [Recovering/Resolving]
  - Visual impairment [Unknown]
  - Fall [Recovering/Resolving]
  - Back injury [Recovering/Resolving]
  - Back pain [Not Recovered/Not Resolved]
  - Altered visual depth perception [Not Recovered/Not Resolved]

NARRATIVE: CASE EVENT DATE: 20240101
